FAERS Safety Report 25250751 (Version 1)
Quarter: 2025Q2

REPORT INFORMATION
  Report Type: Spontaneous
  Country: JP (occurrence: JP)
  Receive Date: 20250429
  Receipt Date: 20250429
  Transmission Date: 20250716
  Serious: Yes (Death, Hospitalization, Other)
  Sender: PFIZER
  Company Number: JP-PFIZER INC-PV202500049060

PATIENT
  Age: 66 Year
  Sex: Male
  Weight: 60 kg

DRUGS (3)
  1. BENDAMUSTINE HYDROCHLORIDE [Suspect]
     Active Substance: BENDAMUSTINE HYDROCHLORIDE
     Indication: Follicular lymphoma
  2. OBINUTUZUMAB [Suspect]
     Active Substance: OBINUTUZUMAB
     Indication: Follicular lymphoma
  3. CILGAVIMAB\TIXAGEVIMAB [Concomitant]
     Active Substance: CILGAVIMAB\TIXAGEVIMAB

REACTIONS (2)
  - Humoral immune defect [Fatal]
  - COVID-19 pneumonia [Fatal]
